FAERS Safety Report 6292452-X (Version None)
Quarter: 2009Q3

REPORT INFORMATION
  Report Type: 
  Country: None (occurrence: None)
  Receive Date: 20090730
  Receipt Date: 20090730
  Transmission Date: 20100115
  Serious: No
  Sender: FDA-Public Use
  Company Number: None

PATIENT
  Sex: Female
  Weight: 50.8029 kg

DRUGS (1)
  1. TOPIRAMATE [Suspect]
     Indication: CLUSTER HEADACHE
     Dosage: 1 TABLET AT BEDTIME
     Dates: start: 20090616, end: 20090729

REACTIONS (6)
  - ANGINA PECTORIS [None]
  - BLOOD GLUCOSE DECREASED [None]
  - DRUG INEFFECTIVE [None]
  - HEADACHE [None]
  - PRODUCT SUBSTITUTION ISSUE [None]
  - SYNCOPE [None]
